FAERS Safety Report 6153305-0 (Version None)
Quarter: 2009Q2

REPORT INFORMATION
  Report Type: 
  Country: None (occurrence: None)
  Receive Date: 20090413
  Receipt Date: 20090408
  Transmission Date: 20091009
  Serious: No
  Sender: FDA-Public Use
  Company Number: US-B.I. PHARMACEUTICALS,INC./RIDGEFIELD-2009-BP-04453BP

PATIENT

DRUGS (1)
  1. MICARDIS [Suspect]
     Dosage: 40MG
     Dates: start: 20090301

REACTIONS (1)
  - VISION BLURRED [None]
